FAERS Safety Report 6489684-4 (Version None)
Quarter: 2009Q4

REPORT INFORMATION
  Report Type: 
  Country: None (occurrence: None)
  Receive Date: 20091207
  Receipt Date: 20091120
  Transmission Date: 20100525
  Serious: Yes (Hospitalization)
  Sender: FDA-Public Use
  Company Number: DEP_00311_2009

PATIENT
  Age: 49 Year
  Sex: Female

DRUGS (6)
  1. METFORMIN HCL [Suspect]
     Indication: TYPE 2 DIABETES MELLITUS
     Dosage: (DF)
  2. LOSARTAN [Concomitant]
  3. BENDROFLUMETHIAZIDE [Concomitant]
  4. ATENOLOL [Concomitant]
  5. NSAID'S [Concomitant]
  6. PROCHLORPERAZINE [Concomitant]

REACTIONS (10)
  - ABDOMINAL PAIN LOWER [None]
  - DEHYDRATION [None]
  - DIARRHOEA [None]
  - HAEMODIALYSIS [None]
  - HYPERLACTACIDAEMIA [None]
  - HYPOTENSION [None]
  - HYPOXIA [None]
  - LACTIC ACIDOSIS [None]
  - PULMONARY OEDEMA [None]
  - RENAL FAILURE ACUTE [None]
